FAERS Safety Report 6245350-1 (Version None)
Quarter: 2009Q2

REPORT INFORMATION
  Report Type: 
  Country: None (occurrence: None)
  Receive Date: 20090625
  Receipt Date: 20090615
  Transmission Date: 20091009
  Serious: Yes (Death)
  Sender: FDA-Public Use
  Company Number: ES-PFIZER INC-2009212378

PATIENT
  Age: 81 Year

DRUGS (3)
  1. LYRICA [Suspect]
     Indication: BACK PAIN
     Dosage: 25 MG, UNK
     Route: 048
     Dates: start: 20080901, end: 20081101
  2. DURAGESIC-100 [Interacting]
     Indication: BACK PAIN
     Dosage: 75 UG, 1X/DAY
     Route: 062
     Dates: start: 20080930, end: 20081101
  3. SEVREDOL [Interacting]
     Indication: BACK PAIN
     Dosage: 10 MG, UNK
     Route: 048
     Dates: start: 20080901, end: 20081101

REACTIONS (4)
  - CONFUSIONAL STATE [None]
  - DRUG INTERACTION [None]
  - OVERDOSE [None]
  - RESPIRATORY FAILURE [None]
